FAERS Safety Report 5768873-8 (Version None)
Quarter: 2008Q2

REPORT INFORMATION
  Report Type: 
  Country: None (occurrence: None)
  Receive Date: 20080610
  Receipt Date: 20080529
  Transmission Date: 20081010
  Serious: Yes (Death)
  Sender: FDA-Public Use
  Company Number: GXKR2008AT04886

PATIENT
  Age: 62 Year
  Sex: Male

DRUGS (5)
  1. PREDNISOLONE [Suspect]
     Indication: IMMUNOSUPPRESSION
     Dosage: IV BOLUS
     Route: 040
  2. TACROLIMUS [Suspect]
     Indication: IMMUNOSUPPRESSION
  3. SIROLIMUS (SIROLIMUS) [Suspect]
     Indication: IMMUNOSUPPRESSION
  4. SIMULECT [Suspect]
     Indication: IMMUNOSUPPRESSION
  5. VORICONAZOLE (VORICONAZOLE) [Suspect]
     Indication: PROPHYLAXIS

REACTIONS (8)
  - DIARRHOEA [None]
  - LUNG INFECTION [None]
  - MULTI-ORGAN FAILURE [None]
  - OESOPHAGEAL ULCER [None]
  - RASH [None]
  - SEPSIS [None]
  - SYSTEMIC MYCOSIS [None]
  - ZYGOMYCOSIS [None]
